FAERS Safety Report 12353964 (Version 1)
Quarter: 2016Q2

REPORT INFORMATION
  Report Type: Spontaneous
  Country: US (occurrence: US)
  Receive Date: 20160511
  Receipt Date: 20160511
  Transmission Date: 20160815
  Serious: Yes (Other)
  Sender: FDA-Public Use
  Company Number: US-CIPLA LTD.-2016US04701

PATIENT

DRUGS (5)
  1. IRINOTECAN [Suspect]
     Active Substance: IRINOTECAN
     Indication: NEUROBLASTOMA
     Dosage: UNK, PRIOR CHEMOTHERAPY
     Route: 065
  2. TEMOZOLOMIDE. [Suspect]
     Active Substance: TEMOZOLOMIDE
     Indication: NEUROBLASTOMA
     Dosage: UNK, PRIOR CHEMOTHERAPY
     Route: 065
  3. IRINOTECAN [Suspect]
     Active Substance: IRINOTECAN
     Dosage: 50 MG/M2, OVER 60 MINS ON DAYS 1 TO 5
     Route: 042
  4. TEMOZOLOMIDE. [Suspect]
     Active Substance: TEMOZOLOMIDE
     Dosage: 100 MG/M2, ONE HOUR BEFORE IRINOTECAN ON DAYS 1 TO 5
     Route: 048
  5. ALISERTIB [Suspect]
     Active Substance: ALISERTIB
     Indication: NEUROBLASTOMA
     Dosage: 45 MG/M2, QD
     Route: 048

REACTIONS (4)
  - Decreased appetite [Unknown]
  - Neutropenia [Unknown]
  - Pharyngitis [Unknown]
  - Oral pain [Unknown]
